FAERS Safety Report 11519816 (Version 1)
Quarter: 2015Q3

REPORT INFORMATION
  Report Type: Spontaneous
  Country: US (occurrence: None)
  Receive Date: 20150916
  Receipt Date: 20150916
  Transmission Date: 20151125
  Serious: Yes (Other)
  Sender: FDA-Public Use
  Company Number: 001983089A

PATIENT
  Sex: Female

DRUGS (1)
  1. PROACTIV RENEWING CLEANSER [Suspect]
     Active Substance: BENZOYL PEROXIDE
     Indication: ACNE
     Dosage: ONCE DAILY DERMAL
     Route: 061
     Dates: start: 20140128, end: 20150807

REACTIONS (3)
  - Skin exfoliation [None]
  - Skin burning sensation [None]
  - Swelling [None]

NARRATIVE: CASE EVENT DATE: 201508
